FAERS Safety Report 6940568-4 (Version None)
Quarter: 2010Q3

REPORT INFORMATION
  Report Type: 
  Country: None (occurrence: None)
  Receive Date: 20100825
  Receipt Date: 20100817
  Transmission Date: 20110219
  Serious: Yes (Hospitalization, Disabling)
  Sender: FDA-Public Use
  Company Number: US-BAYER-201031035NA

PATIENT
  Age: 73 Year
  Sex: Female
  Weight: 61 kg

DRUGS (14)
  1. CLIMARA [Suspect]
     Indication: HOT FLUSH
     Route: 062
     Dates: start: 20091101
  2. CELEBREX [Suspect]
     Indication: ARTHRITIS
     Dosage: TOTAL DAILY DOSE: 200 MG
     Route: 048
     Dates: start: 20100101
  3. NAPROXEN [Suspect]
     Indication: ARTHRITIS
     Dosage: TOTAL DAILY DOSE: 1 G  UNIT DOSE: 500 MG
     Dates: end: 20070101
  4. NAPROXEN [Suspect]
     Dosage: TOTAL DAILY DOSE: 1 G  UNIT DOSE: 500 MG
     Dates: end: 20100101
  5. TRICOR [Suspect]
     Indication: PRODUCT USED FOR UNKNOWN INDICATION
     Dates: end: 20100101
  6. ALTOPREV [Suspect]
     Indication: PRODUCT USED FOR UNKNOWN INDICATION
     Dosage: EXTENDED RELEASE
     Dates: end: 20100101
  7. HYZAAR [Concomitant]
     Indication: HYPERTENSION
     Dosage: 5012.5 MG
  8. ASPIRIN [Concomitant]
     Dates: end: 20070101
  9. ASPIRIN [Concomitant]
     Dosage: THE DRUG WAS DISCONTINUED FOR A MONTH DUE TO THE OBSERVATION OF BLOOD IN HER STOOLS
     Dates: start: 20070101
  10. RESTORIL [Concomitant]
     Indication: SLEEP DISORDER
  11. FENTANYL CITRATE [Concomitant]
     Route: 062
  12. ACIPHEX [Concomitant]
  13. WELLBUTRIN XL [Concomitant]
  14. VITAMINS AND MINERALS [Concomitant]

REACTIONS (4)
  - ALOPECIA [None]
  - BACK DISORDER [None]
  - PAIN [None]
  - PARALYSIS [None]
